FAERS Safety Report 4895187-0 (Version None)
Quarter: 2006Q1

REPORT INFORMATION
  Report Type: 
  Country: None (occurrence: None)
  Receive Date: 20060125
  Receipt Date: 20040108
  Transmission Date: 20060701
  Serious: Yes (Hospitalization)
  Sender: FDA-Public Use
  Company Number: FR_040103384

PATIENT
  Age: 85 Year
  Sex: Female
  Weight: 49 kg

DRUGS (4)
  1. VANCOMYCIN [Suspect]
     Indication: BRONCHIAL DISORDER
     Dates: start: 20030905, end: 20030913
  2. RIFADIN [Concomitant]
  3. OMEPRAZOLE [Concomitant]
  4. ZESTRIL [Concomitant]

REACTIONS (1)
  - HYPONATRAEMIA [None]
